FAERS Safety Report 11480164 (Version 4)
Quarter: 2016Q2

REPORT INFORMATION
  Report Type: Spontaneous
  Country: BR (occurrence: BR)
  Receive Date: 20150909
  Receipt Date: 20160628
  Transmission Date: 20160815
  Serious: Yes (Other)
  Sender: FDA-Public Use
  Company Number: BR-JNJFOC-20150310100

PATIENT
  Age: 63 Year
  Sex: Female

DRUGS (4)
  1. SIMPONI [Suspect]
     Active Substance: GOLIMUMAB
     Indication: RHEUMATOID ARTHRITIS
     Route: 058
     Dates: start: 20140425
  2. PREDNISONE. [Concomitant]
     Active Substance: PREDNISONE
     Indication: RHEUMATOID ARTHRITIS
     Route: 065
  3. ARAVA [Concomitant]
     Active Substance: LEFLUNOMIDE
     Indication: RHEUMATOID ARTHRITIS
     Route: 065
  4. SIMPONI [Suspect]
     Active Substance: GOLIMUMAB
     Indication: RHEUMATOID ARTHRITIS
     Route: 058
     Dates: start: 201505

REACTIONS (22)
  - Wound [Unknown]
  - Skin ulcer [Not Recovered/Not Resolved]
  - Poor quality drug administered [Unknown]
  - Dyspnoea [Unknown]
  - Rheumatoid arthritis [Unknown]
  - Arthralgia [Not Recovered/Not Resolved]
  - Product packaging issue [Unknown]
  - Device malfunction [Unknown]
  - Cough [Not Recovered/Not Resolved]
  - Localised infection [Unknown]
  - Anaemia [Unknown]
  - Incorrect product storage [Unknown]
  - Rhinitis [Not Recovered/Not Resolved]
  - Decreased appetite [Unknown]
  - Toothache [Not Recovered/Not Resolved]
  - Injection site pain [Recovered/Resolved]
  - Influenza [Not Recovered/Not Resolved]
  - Cervical cyst [Unknown]
  - Phlebitis [Unknown]
  - Bone atrophy [Unknown]
  - Inappropriate schedule of drug administration [Unknown]
  - Nausea [Unknown]

NARRATIVE: CASE EVENT DATE: 2014
